FAERS Safety Report 11061463 (Version 5)
Quarter: 2016Q2

REPORT INFORMATION
  Report Type: Spontaneous
  Country: US (occurrence: US)
  Receive Date: 20150424
  Receipt Date: 20160407
  Transmission Date: 20160815
  Serious: Yes (Other)
  Sender: FDA-Public Use
  Company Number: US-PFIZER INC-2015140693

PATIENT
  Age: 66 Year
  Sex: Female

DRUGS (1)
  1. LYRICA [Suspect]
     Active Substance: PREGABALIN
     Indication: DIABETIC NEUROPATHY
     Dosage: UNK, 2X/DAY
     Route: 048
     Dates: start: 20150330, end: 20160318

REACTIONS (4)
  - Gastric haemorrhage [Unknown]
  - Insomnia [Unknown]
  - Peptic ulcer [Unknown]
  - Gait disturbance [Unknown]
